FAERS Safety Report 5674790-4 (Version None)
Quarter: 2008Q1

REPORT INFORMATION
  Report Type: 
  Country: None (occurrence: None)
  Receive Date: 20080319
  Receipt Date: 20080319
  Transmission Date: 20080703
  Serious: Yes (Hospitalization)
  Sender: FDA-Public Use
  Company Number: None

PATIENT
  Sex: Male
  Weight: 99.7913 kg

DRUGS (1)
  1. AMBIEN [Suspect]
     Indication: INSOMNIA
     Dosage: 1 TABLET BEDTIME PO
     Route: 048
     Dates: start: 20070818, end: 20080107

REACTIONS (9)
  - AGITATION [None]
  - ANXIETY [None]
  - DRY MOUTH [None]
  - DYSGEUSIA [None]
  - HALLUCINATION [None]
  - MAJOR DEPRESSION [None]
  - PSYCHOTIC DISORDER [None]
  - SINUSITIS [None]
  - WEIGHT DECREASED [None]
